FAERS Safety Report 19787258 (Version 1)
Quarter: 2021Q3

REPORT INFORMATION
  Report Type: Report from Study
  Country: MY (occurrence: MY)
  Receive Date: 20210903
  Receipt Date: 20210903
  Transmission Date: 20211014
  Serious: Yes (Death)
  Sender: FDA-Public Use
  Company Number: MY-PFIZER INC-202101139384

PATIENT
  Age: 53 Year
  Sex: Male
  Weight: 43.6 kg

DRUGS (3)
  1. BLINDED THERAPY [Suspect]
     Active Substance: INVESTIGATIONAL PRODUCT
     Indication: NON-SMALL CELL LUNG CANCER
     Dosage: UNK
     Dates: start: 20210809, end: 20210809
  2. PEMETREXED. [Suspect]
     Active Substance: PEMETREXED
     Indication: NON-SMALL CELL LUNG CANCER
     Dosage: MILLIGRAM/SQ. METER, 500 MG/M2, EVERY 3 WEEKS
     Route: 042
     Dates: start: 20210809, end: 20210809
  3. CARBOPLATIN. [Suspect]
     Active Substance: CARBOPLATIN
     Dosage: MILLIGRAM/SQ. METER, AUC 5, EVERY 3 WEEKS
     Route: 042
     Dates: start: 20210809, end: 20210809

REACTIONS (1)
  - Abdominal sepsis [Fatal]

NARRATIVE: CASE EVENT DATE: 20210820
